FAERS Safety Report 15269567 (Version 2)
Quarter: 2018Q4

REPORT INFORMATION
  Report Type: Report from Study
  Country: US (occurrence: US)
  Receive Date: 20180813
  Receipt Date: 20181220
  Transmission Date: 20190204
  Serious: No
  Sender: FDA-Public Use
  Company Number: PHEH2018US032917

PATIENT
  Age: 75 Year
  Sex: Male

DRUGS (2)
  1. COSENTYX [Suspect]
     Active Substance: SECUKINUMAB
     Indication: PSORIASIS
     Dosage: 2 DF (300 MG), QMO (EVERY 4 WEEKS)
     Route: 058
  2. OTEZLA [Concomitant]
     Active Substance: APREMILAST
     Indication: PSORIASIS
     Route: 065

REACTIONS (3)
  - Haemoglobin decreased [Unknown]
  - Iron deficiency anaemia [Recovering/Resolving]
  - Psoriasis [Unknown]
